FAERS Safety Report 22365842 (Version 2)
Quarter: 2023Q2

REPORT INFORMATION
  Report Type: Spontaneous
  Country: US (occurrence: US)
  Receive Date: 20230525
  Receipt Date: 20230627
  Transmission Date: 20230721
  Serious: No
  Sender: FDA-Public Use
  Company Number: US-AMGEN-USASP2023087021

PATIENT
  Age: 36 Year
  Sex: Male

DRUGS (1)
  1. OTEZLA [Suspect]
     Active Substance: APREMILAST
     Indication: Product used for unknown indication
     Dosage: UNK
     Route: 048

REACTIONS (6)
  - Skin haemorrhage [Unknown]
  - Mood altered [Unknown]
  - Groin pain [Unknown]
  - Skin disorder [Not Recovered/Not Resolved]
  - Skin erosion [Unknown]
  - Nail disorder [Not Recovered/Not Resolved]
